FAERS Safety Report 9114605 (Version 1)
Quarter: 2013Q1

REPORT INFORMATION
  Report Type: Spontaneous
  Country: US (occurrence: None)
  Receive Date: 20130220
  Receipt Date: 20130220
  Transmission Date: 20140127
  Serious: No
  Sender: FDA-Public Use
  Company Number: None

PATIENT
  Age: 78 Year
  Sex: Male

DRUGS (9)
  1. CIMZIA [Suspect]
     Dosage: UNDER THE SKIN, EVERY 4 WEEKS
     Dates: start: 20090303
  2. TERBINAFINE [Concomitant]
  3. CLOPIDOGREL [Concomitant]
  4. BYSTOLIC [Concomitant]
  5. ALPRAZOLAM [Concomitant]
  6. FLOMAXBUMEX [Concomitant]
  7. FINASTERIDE [Concomitant]
  8. PREDNISONE [Concomitant]
  9. METHADONE [Concomitant]

REACTIONS (2)
  - Basal cell carcinoma [None]
  - Aortic aneurysm [None]
